FAERS Safety Report 5109700-1 (Version None)
Quarter: 2006Q3

REPORT INFORMATION
  Report Type: 
  Country: None (occurrence: None)
  Receive Date: 20060918
  Receipt Date: 20060911
  Transmission Date: 20061208
  Serious: Yes (Hospitalization, Disabling, Other)
  Sender: FDA-Public Use
  Company Number: PHBS2006GB11287

PATIENT
  Age: 84 Year
  Sex: Male

DRUGS (12)
  1. COMTESS             (ENTACAPONE) [Suspect]
     Indication: PARKINSON'S DISEASE
     Dosage: SEE IMAGE
     Route: 048
     Dates: start: 20060719, end: 20060719
  2. COMTESS             (ENTACAPONE) [Suspect]
     Indication: PARKINSON'S DISEASE
     Dosage: SEE IMAGE
     Route: 048
     Dates: start: 20060720, end: 20060720
  3. WARFARIN SODIUM [Suspect]
  4. MADOPAR                 (BENSERAZIDE HYDROCHLORIDE, LEVODOPA) [Concomitant]
  5. QUININE SULFATE [Concomitant]
  6. RAMIPRIL [Concomitant]
  7. FELODIPINE [Concomitant]
  8. AMIODARONE HCL [Concomitant]
  9. FUROSEMIDE [Concomitant]
  10. TADALAFIL                     (TADALAFIL) [Concomitant]
  11. DIGOXIN [Concomitant]
  12. ALSASOLYN MR [Concomitant]

REACTIONS (6)
  - CONFUSIONAL STATE [None]
  - CONTUSION [None]
  - DRUG INTERACTION [None]
  - INTERNATIONAL NORMALISED RATIO INCREASED [None]
  - RECTAL HAEMORRHAGE [None]
  - REFUSAL OF TREATMENT BY RELATIVE [None]
